FAERS Safety Report 5195091-7 (Version None)
Quarter: 2006Q4

REPORT INFORMATION
  Report Type: 
  Country: None (occurrence: None)
  Receive Date: 20061229
  Receipt Date: 20060322
  Transmission Date: 20070319
  Serious: Yes (Other)
  Sender: FDA-Public Use
  Company Number: US-SHR-US-2006-006572

PATIENT
  Age: 59 Year
  Sex: Female

DRUGS (8)
  1. BETASERON [Suspect]
     Indication: PRIMARY PROGRESSIVE MULTIPLE SCLEROSIS
     Dosage: 8 MIU, EVERY 2D
     Route: 058
     Dates: start: 19940913
  2. NORVASC [Concomitant]
  3. ATENOLOL [Concomitant]
  4. DIOVAN [Concomitant]
  5. BACLOFEN [Concomitant]
  6. FOLIC ACID [Concomitant]
  7. METHOTREXATE [Concomitant]
  8. CORTICOSTEROIDS FOR SYSTEMIC USE [Suspect]
     Dosage: UNK, 1X/MONTH
     Route: 042

REACTIONS (6)
  - DYSGEUSIA [None]
  - DYSPNOEA [None]
  - LOSS OF CONSCIOUSNESS [None]
  - MULTIPLE SCLEROSIS [None]
  - THERMAL BURN [None]
  - TREMOR [None]
